FAERS Safety Report 5886271-3 (Version None)
Quarter: 2008Q3

REPORT INFORMATION
  Report Type: 
  Country: None (occurrence: None)
  Receive Date: 20080917
  Receipt Date: 20080908
  Transmission Date: 20090109
  Serious: Yes (Death, Hospitalization)
  Sender: FDA-Public Use
  Company Number: A0700779A

PATIENT
  Age: 64 Year
  Sex: Female
  Weight: 59.1 kg

DRUGS (8)
  1. AVANDIA [Suspect]
     Indication: DIABETES MELLITUS
     Dosage: 4MG TWICE PER DAY
     Route: 048
     Dates: start: 20030101, end: 20050101
  2. GLUCOPHAGE [Concomitant]
     Dates: start: 20030108
  3. HUMALOG [Concomitant]
  4. GLARGINE [Concomitant]
  5. FUROSEMIDE [Concomitant]
  6. LIPITOR [Concomitant]
  7. CARTIA XT [Concomitant]
  8. TOPROL-XL [Concomitant]

REACTIONS (10)
  - CARDIAC FAILURE [None]
  - CARDIAC FAILURE CONGESTIVE [None]
  - CEREBRAL HAEMORRHAGE [None]
  - CEREBROVASCULAR ACCIDENT [None]
  - CORONARY ARTERY DISEASE [None]
  - HYPERTENSION [None]
  - MYOCARDIAL INFARCTION [None]
  - MYOCARDIAL ISCHAEMIA [None]
  - PLEURAL EFFUSION [None]
  - RENAL FAILURE [None]
